FAERS Safety Report 6597603-5 (Version None)
Quarter: 2010Q1

REPORT INFORMATION
  Report Type: 
  Country: None (occurrence: None)
  Receive Date: 20100223
  Receipt Date: 20100215
  Transmission Date: 20100710
  Serious: Yes (Life-Threatening, Other)
  Sender: FDA-Public Use
  Company Number: DE-B.I. PHARMACEUTICALS,INC./RIDGEFIELD-2010-DE-01059DE

PATIENT
  Age: 50 Year
  Sex: Female

DRUGS (3)
  1. SIFROL [Suspect]
     Route: 048
  2. ALMOGRAN [Suspect]
     Route: 048
  3. CITALOPRAM HYDROBROMIDE [Suspect]
     Route: 048

REACTIONS (3)
  - COMA [None]
  - DRUG ABUSE [None]
  - SUICIDE ATTEMPT [None]
